FAERS Safety Report 18222676 (Version 1)
Quarter: 2020Q3

REPORT INFORMATION
  Report Type: Spontaneous
  Country: US (occurrence: US)
  Receive Date: 20200902
  Receipt Date: 20200902
  Transmission Date: 20201103
  Serious: No
  Sender: FDA-Public Use
  Company Number: US-009507513-2008USA011745

PATIENT
  Age: 82 Year
  Sex: Female
  Weight: 88.44 kg

DRUGS (9)
  1. TYVASO [Suspect]
     Active Substance: TREPROSTINIL
     Dosage: 18?54 ?G (3?9 BREATHS), QID, ROUTE: INHALATION
  2. TYVASO [Suspect]
     Active Substance: TREPROSTINIL
     Dosage: ROUTE: INHALATION
  3. SILDENAFIL CITRATE. [Concomitant]
     Active Substance: SILDENAFIL CITRATE
  4. OPSUMIT [Concomitant]
     Active Substance: MACITENTAN
  5. TYVASO [Suspect]
     Active Substance: TREPROSTINIL
     Indication: PULMONARY ARTERIAL HYPERTENSION
     Dosage: CONCENTRATION: 0.6 MG/ML
     Route: 055
     Dates: start: 20200115
  6. FUROSEMIDE. [Suspect]
     Active Substance: FUROSEMIDE
     Dosage: 40 MILLIGRAM, BID (1 IN AM AND 1 IN PM)
  7. COZAAR [Suspect]
     Active Substance: LOSARTAN POTASSIUM
     Dosage: 25 MILLIGRAM
     Route: 048
  8. POTASSIUM CHLORIDE. [Suspect]
     Active Substance: POTASSIUM CHLORIDE
     Dosage: 10 MILLIGRAM, BID
  9. PREDNISONE. [Suspect]
     Active Substance: PREDNISONE
     Dosage: 5 MILLIGRAM

REACTIONS (5)
  - Muscle spasms [Unknown]
  - Dry mouth [Unknown]
  - Epistaxis [Not Recovered/Not Resolved]
  - Ear discomfort [Unknown]
  - Lip scab [Unknown]

NARRATIVE: CASE EVENT DATE: 2020
